FAERS Safety Report 24421488 (Version 2)
Quarter: 2025Q2

REPORT INFORMATION
  Report Type: Spontaneous
  Country: VE (occurrence: VE)
  Receive Date: 20241010
  Receipt Date: 20250625
  Transmission Date: 20250716
  Serious: Yes (Hospitalization)
  Sender: NOVARTIS
  Company Number: VE-002147023-NVSC2024VE197941

PATIENT
  Sex: Male

DRUGS (1)
  1. GLIVEC [Suspect]
     Active Substance: IMATINIB MESYLATE
     Indication: Chronic myeloid leukaemia
     Route: 065

REACTIONS (5)
  - Road traffic accident [Recovered/Resolved]
  - Ear injury [Recovered/Resolved]
  - Ligament sprain [Recovered/Resolved]
  - Contusion [Recovered/Resolved]
  - Pain [Not Recovered/Not Resolved]
